FAERS Safety Report 14358318 (Version 1)
Quarter: 2018Q1

REPORT INFORMATION
  Report Type: Spontaneous
  Country: US (occurrence: US)
  Receive Date: 20180105
  Receipt Date: 20180105
  Transmission Date: 20180509
  Serious: No
  Sender: FDA-Public Use
  Company Number: US-SA-2017SA203596

PATIENT
  Age: 67 Year
  Sex: Female
  Weight: 93.89 kg

DRUGS (9)
  1. DUPIXENT [Suspect]
     Active Substance: DUPILUMAB
     Indication: DERMATITIS ATOPIC
     Route: 058
     Dates: start: 201709
  2. TACROLIMUS. [Concomitant]
     Active Substance: TACROLIMUS
  3. LISINOPRIL. [Concomitant]
     Active Substance: LISINOPRIL
  4. NYSTATIN. [Concomitant]
     Active Substance: NYSTATIN
  5. ATENOLOL. [Concomitant]
     Active Substance: ATENOLOL
  6. FLUOCINONIDE. [Concomitant]
     Active Substance: FLUOCINONIDE
  7. HYDROCHLOROTHIAZIDE. [Concomitant]
     Active Substance: HYDROCHLOROTHIAZIDE
  8. LATANOPROST. [Concomitant]
     Active Substance: LATANOPROST
  9. ADVIL [Concomitant]
     Active Substance: IBUPROFEN

REACTIONS (2)
  - Blood pressure increased [Unknown]
  - Dry skin [Unknown]
